FAERS Safety Report 11973617 (Version 2)
Quarter: 2016Q1

REPORT INFORMATION
  Report Type: Report from Study
  Country: US (occurrence: US)
  Receive Date: 20160128
  Receipt Date: 20160202
  Transmission Date: 20160526
  Serious: No
  Sender: FDA-Public Use
  Company Number: US-ABBVIE-15K-163-1399901-00

PATIENT
  Sex: Female

DRUGS (1)
  1. HUMIRA [Suspect]
     Active Substance: ADALIMUMAB
     Indication: PSORIASIS
     Route: 065

REACTIONS (8)
  - Vision blurred [Not Recovered/Not Resolved]
  - Vision blurred [Recovered/Resolved]
  - Paraesthesia [Recovered/Resolved]
  - Bone disorder [Unknown]
  - Joint stiffness [Not Recovered/Not Resolved]
  - Fear of injection [Unknown]
  - Fatigue [Recovered/Resolved]
  - Joint stiffness [Recovered/Resolved]
